FAERS Safety Report 5736118-0 (Version None)
Quarter: 2008Q2

REPORT INFORMATION
  Report Type: 
  Country: None (occurrence: None)
  Receive Date: 20080509
  Receipt Date: 20080429
  Transmission Date: 20081010
  Serious: Yes (Hospitalization)
  Sender: FDA-Public Use
  Company Number: 2008BI008787

PATIENT
  Age: 51 Year
  Sex: Female
  Weight: 61.2356 kg

DRUGS (1)
  1. AVONEX [Suspect]
     Indication: MULTIPLE SCLEROSIS
     Dosage: 30 UG, QW, IM
     Route: 030
     Dates: start: 20020131

REACTIONS (13)
  - BALANCE DISORDER [None]
  - CONTUSION [None]
  - DIZZINESS [None]
  - FALL [None]
  - FATIGUE [None]
  - HEAD INJURY [None]
  - HYPOTENSION [None]
  - INFLUENZA [None]
  - LOSS OF CONSCIOUSNESS [None]
  - SYNCOPE [None]
  - URINARY TRACT INFECTION [None]
  - VAGINITIS BACTERIAL [None]
  - VOMITING [None]
